FAERS Safety Report 7356056-X (Version None)
Quarter: 2011Q1

REPORT INFORMATION
  Report Type: 
  Country: None (occurrence: None)
  Receive Date: 20110316
  Receipt Date: 20110308
  Transmission Date: 20110831
  Serious: No
  Sender: FDA-Public Use
  Company Number: JP-ELI_LILLY_AND_COMPANY-JP201103000376

PATIENT
  Sex: Female

DRUGS (3)
  1. GASMOTIN [Concomitant]
     Dosage: 15 MG, DAILY (1/D)
     Route: 048
     Dates: start: 20101228, end: 20110221
  2. MEILAX [Concomitant]
     Dosage: 1 MG, DAILY (1/D)
     Route: 048
     Dates: start: 20100802
  3. ZYPREXA [Suspect]
     Indication: PANIC DISORDER
     Dosage: 2 MG, DAILY (1/D)
     Route: 048
     Dates: start: 20100907

REACTIONS (3)
  - OFF LABEL USE [None]
  - PLATELET COUNT DECREASED [None]
  - CHEST DISCOMFORT [None]
